FAERS Safety Report 22847127 (Version 2)
Quarter: 2024Q3

REPORT INFORMATION
  Report Type: Other
  Country: CA (occurrence: CA)
  Receive Date: 20230822
  Receipt Date: 20240725
  Transmission Date: 20241017
  Serious: Yes (Other)
  Sender: TOLMAR
  Company Number: CA-TOLMAR, INC.-23CA042335

PATIENT
  Sex: Male

DRUGS (6)
  1. ELIGARD [Suspect]
     Active Substance: LEUPROLIDE ACETATE
     Indication: Prostate cancer
     Dosage: 45 MILLIGRAM, Q 6 MONTH
     Route: 058
     Dates: start: 20201028
  2. ELIGARD [Suspect]
     Active Substance: LEUPROLIDE ACETATE
     Dosage: 45 MILLIGRAM, Q 6 MONTH
     Route: 058
     Dates: start: 20230801
  3. ELIGARD [Suspect]
     Active Substance: LEUPROLIDE ACETATE
     Dosage: 45 MILLIGRAM, Q 6 MONTH
     Route: 058
     Dates: start: 20240703
  4. ELIGARD [Suspect]
     Active Substance: LEUPROLIDE ACETATE
     Indication: Prostate cancer
     Dosage: UNK
  5. ABIRATERONE [Concomitant]
     Active Substance: ABIRATERONE
     Indication: Product used for unknown indication
  6. DEXAMETHASONE [Concomitant]
     Active Substance: DEXAMETHASONE
     Indication: Product used for unknown indication

REACTIONS (3)
  - Urinary tract infection [Unknown]
  - Hot flush [Not Recovered/Not Resolved]
  - Hyperhidrosis [Unknown]
